FAERS Safety Report 17610505 (Version 1)
Quarter: 2020Q2

REPORT INFORMATION
  Report Type: Spontaneous
  Country: US (occurrence: US)
  Receive Date: 20200401
  Receipt Date: 20200401
  Transmission Date: 20200713
  Serious: No
  Sender: FDA-Public Use
  Company Number: None

PATIENT

DRUGS (3)
  1. HYDROCHLOROTHIAZIDE. [Suspect]
     Active Substance: HYDROCHLOROTHIAZIDE
  2. HYDRALAZINE HYDROCHLORIDE 10 MG [Suspect]
     Active Substance: HYDRALAZINE HYDROCHLORIDE
  3. HYDROXYZINE PAMOATE. [Suspect]
     Active Substance: HYDROXYZINE PAMOATE

REACTIONS (4)
  - Product packaging confusion [None]
  - Circumstance or information capable of leading to medication error [None]
  - Product appearance confusion [None]
  - Wrong drug [None]

NARRATIVE: CASE EVENT DATE: 20200326
